FAERS Safety Report 19397599 (Version 1)
Quarter: 2021Q2

REPORT INFORMATION
  Report Type: Report from Study
  Country: None (occurrence: US)
  Receive Date: 20210609
  Receipt Date: 20210609
  Transmission Date: 20210717
  Serious: Yes (Other)
  Sender: FDA-Public Use
  Company Number: US-ABBVIE-21K-163-3878208-00

PATIENT
  Sex: Female
  Weight: 106.69 kg

DRUGS (12)
  1. DYAZIDE [Concomitant]
     Active Substance: HYDROCHLOROTHIAZIDE\TRIAMTERENE
     Indication: DIURETIC THERAPY
  2. HUMIRA [Suspect]
     Active Substance: ADALIMUMAB
     Indication: PSORIATIC ARTHROPATHY
     Dosage: CITRATE FREE
     Route: 058
     Dates: start: 2013, end: 2016
  3. HUMIRA [Suspect]
     Active Substance: ADALIMUMAB
     Dosage: CITRATE FREE
     Route: 058
     Dates: start: 20210425
  4. BACLOFEN. [Concomitant]
     Active Substance: BACLOFEN
     Indication: PAIN
  5. DYAZIDE [Concomitant]
     Active Substance: HYDROCHLOROTHIAZIDE\TRIAMTERENE
     Indication: LYMPHOEDEMA
  6. LEVOTHYROXINE. [Concomitant]
     Active Substance: LEVOTHYROXINE
     Indication: HYPOTHYROIDISM
  7. POTASSIUM [Concomitant]
     Active Substance: POTASSIUM
     Indication: LYMPHOEDEMA
  8. TYLENOL [Concomitant]
     Active Substance: ACETAMINOPHEN
     Indication: PAIN
  9. POTASSIUM [Concomitant]
     Active Substance: POTASSIUM
     Indication: DIURETIC THERAPY
  10. TRAMADOL. [Concomitant]
     Active Substance: TRAMADOL
     Indication: PAIN
  11. COVID?19 VACCINE [Concomitant]
     Indication: COVID-19 IMMUNISATION
     Route: 030
     Dates: start: 202103, end: 202103
  12. COVID?19 VACCINE [Concomitant]
     Route: 030
     Dates: start: 202104, end: 202104

REACTIONS (9)
  - Injection site pain [Recovered/Resolved]
  - Psoriatic arthropathy [Not Recovered/Not Resolved]
  - Knee arthroplasty [Recovered/Resolved]
  - Injection site urticaria [Recovered/Resolved]
  - Arthropathy [Unknown]
  - Psoriatic arthropathy [Not Recovered/Not Resolved]
  - Eye injury [Not Recovered/Not Resolved]
  - Myofascial pain syndrome [Not Recovered/Not Resolved]
  - Osteoarthritis [Not Recovered/Not Resolved]

NARRATIVE: CASE EVENT DATE: 2014
